FAERS Safety Report 8270587-X (Version None)
Quarter: 2012Q2

REPORT INFORMATION
  Report Type: 
  Country: None (occurrence: None)
  Receive Date: 20120410
  Receipt Date: 20120330
  Transmission Date: 20120825
  Serious: Yes (Hospitalization, Other)
  Sender: FDA-Public Use
  Company Number: US-SANOFI-AVENTIS-2012SA015889

PATIENT
  Age: 82 Year
  Sex: Male

DRUGS (11)
  1. ALL OTHER THERAPEUTIC PRODUCTS [Suspect]
     Dates: start: 20100121, end: 20100121
  2. ASPIRIN [Suspect]
     Indication: CORONARY ARTERY DISEASE
     Route: 048
     Dates: start: 20100120
  3. BLINDED THERAPY [Suspect]
     Indication: ANTIPLATELET THERAPY
     Route: 065
     Dates: start: 20110107, end: 20120202
  4. PROTONIX [Concomitant]
     Dates: start: 20090501
  5. LOVENOX [Concomitant]
     Dates: start: 20100204
  6. LIPITOR [Concomitant]
     Dates: start: 20050401
  7. METFORMIN HCL [Concomitant]
     Dates: start: 20100225
  8. LOPRESSOR [Concomitant]
     Dates: start: 20050401
  9. LISINOPRIL [Concomitant]
     Dates: start: 20100225
  10. HUMULIN 70/30 [Concomitant]
     Dates: start: 19640101
  11. NORVASC [Concomitant]
     Dates: start: 20040401

REACTIONS (1)
  - CORONARY ARTERY STENOSIS [None]
